FAERS Safety Report 26188431 (Version 1)
Quarter: 2025Q4

REPORT INFORMATION
  Report Type: Spontaneous
  Country: PR (occurrence: PR)
  Receive Date: 20251222
  Receipt Date: 20251222
  Transmission Date: 20260118
  Serious: No
  Sender: ANI
  Company Number: PR-ANIPHARMA-2025-PR-000129

PATIENT
  Age: 48 Year
  Sex: Female
  Weight: 81.65 kg

DRUGS (6)
  1. CORTICOTROPIN [Suspect]
     Active Substance: CORTICOTROPIN
     Indication: Multiple sclerosis
     Dosage: INJECT 80 UNITS SUB-Q DAILY X 15 DAYS
     Route: 058
     Dates: start: 20251112, end: 20251127
  2. MAVENCLAD [Concomitant]
     Active Substance: CLADRIBINE
  3. KESIMPTA [Concomitant]
     Active Substance: OFATUMUMAB
  4. METOPROLOL [Concomitant]
     Active Substance: METOPROLOL
  5. BACLOFEN [Concomitant]
     Active Substance: BACLOFEN
  6. NEURONTIN [Concomitant]
     Active Substance: GABAPENTIN

REACTIONS (3)
  - Temperature intolerance [Recovered/Resolved]
  - Insomnia [Recovered/Resolved]
  - Contraindicated product administered [Recovered/Resolved]

NARRATIVE: CASE EVENT DATE: 20251101
